FAERS Safety Report 9640334 (Version 1)
Quarter: 2013Q4

REPORT INFORMATION
  Report Type: Spontaneous
  Country: US (occurrence: US)
  Receive Date: 20131023
  Receipt Date: 20131023
  Transmission Date: 20140711
  Serious: Yes (Hospitalization)
  Sender: FDA-Public Use
  Company Number: US-ASTRAZENECA-2013SE76479

PATIENT
  Age: 45 Year
  Sex: Female

DRUGS (3)
  1. QUETIAPINE [Suspect]
     Indication: BIPOLAR DISORDER
     Dosage: GENERIC, 200 MG IN THE MORNING AND 400MG IN THE EVENING DAILY
     Route: 048
  2. CLONIDINE [Concomitant]
     Route: 048
  3. NEURONTIN [Concomitant]
     Route: 048

REACTIONS (2)
  - Mental disorder [Unknown]
  - Thrombocytopenia [Unknown]
